FAERS Safety Report 13942746 (Version 2)
Quarter: 2017Q4

REPORT INFORMATION
  Report Type: Spontaneous
  Country: US (occurrence: US)
  Receive Date: 20170906
  Receipt Date: 20171020
  Transmission Date: 20180320
  Serious: Yes (Hospitalization)
  Sender: FDA-Public Use
  Company Number: US-ACTELION-A-US2017-158867

PATIENT
  Age: 57 Year
  Sex: Female
  Weight: 66.67 kg

DRUGS (7)
  1. COUMADIN [Concomitant]
     Active Substance: WARFARIN SODIUM
  2. SILDENAFIL CITRATE. [Concomitant]
     Active Substance: SILDENAFIL CITRATE
  3. LECITHIN [Concomitant]
     Active Substance: LECITHIN
  4. OPSUMIT [Suspect]
     Active Substance: MACITENTAN
     Indication: PULMONARY HYPERTENSION
     Dosage: 10 MG, QD
     Route: 048
     Dates: start: 20151105
  5. VELETRI [Suspect]
     Active Substance: EPOPROSTENOL
     Indication: PULMONARY HYPERTENSION
     Dosage: 57 NG/KG, PER MIN
     Route: 042
  6. CINNAMON. [Concomitant]
     Active Substance: CINNAMON
  7. MULTI VITAMIN [Concomitant]
     Active Substance: VITAMINS

REACTIONS (8)
  - Fatigue [Unknown]
  - Nausea [Unknown]
  - Musculoskeletal pain [Unknown]
  - Vomiting [Unknown]
  - Headache [Unknown]
  - Pain in jaw [Unknown]
  - Oedema peripheral [Unknown]
  - Gastroenteritis [Unknown]
